FAERS Safety Report 6044796-4 (Version None)
Quarter: 2009Q1

REPORT INFORMATION
  Report Type: 
  Country: None (occurrence: None)
  Receive Date: 20090120
  Receipt Date: 20090113
  Transmission Date: 20090719
  Serious: Yes (Hospitalization, Other)
  Sender: FDA-Public Use
  Company Number: US-ABBOTT-09P-163-0497138-00

PATIENT
  Sex: Male
  Weight: 77.18 kg

DRUGS (7)
  1. HUMIRA [Suspect]
     Indication: RHEUMATOID ARTHRITIS
     Route: 058
     Dates: start: 20050301
  2. PREDNISONE [Concomitant]
     Indication: RHEUMATOID ARTHRITIS
  3. DIAZEPAM [Concomitant]
     Indication: ANXIETY
  4. BENLAFAXINE [Concomitant]
     Indication: DEPRESSION
  5. HYDROXYCHLOROQUINE SULFATE [Concomitant]
     Indication: RHEUMATOID ARTHRITIS
  6. ALLOPURINOL [Concomitant]
     Indication: NEPHROLITHIASIS
  7. MORPHINE [Concomitant]
     Indication: PAIN

REACTIONS (8)
  - DIVERTICULITIS [None]
  - FATIGUE [None]
  - FEELING ABNORMAL [None]
  - GALLBLADDER DISORDER [None]
  - SEPSIS [None]
  - VOMITING [None]
  - WEIGHT DECREASED [None]
  - WOUND DEHISCENCE [None]
